FAERS Safety Report 23897464 (Version 2)
Quarter: 2024Q2

REPORT INFORMATION
  Report Type: Report from Study
  Country: US (occurrence: US)
  Receive Date: 20240524
  Receipt Date: 20240605
  Transmission Date: 20240716
  Serious: Yes (Hospitalization, Other)
  Sender: FDA-Public Use
  Company Number: US-JNJFOC-20240541402

PATIENT
  Age: 52 Year
  Sex: Female

DRUGS (2)
  1. SPRAVATO [Suspect]
     Active Substance: ESKETAMINE
     Indication: Depression
     Dosage: 56 MG, 1 TOTAL DOSES
     Dates: start: 20240212, end: 20240212
  2. SPRAVATO [Suspect]
     Active Substance: ESKETAMINE
     Dosage: 84 MG, 10 TOTAL DOSES
     Dates: start: 20240214, end: 20240325

REACTIONS (5)
  - Suicidal ideation [Recovered/Resolved]
  - Loss of consciousness [Unknown]
  - Panic attack [Unknown]
  - Pelvic fracture [Unknown]
  - Fractured sacrum [Not Recovered/Not Resolved]

NARRATIVE: CASE EVENT DATE: 20240101
